FAERS Safety Report 14841737 (Version 1)
Quarter: 2018Q2

REPORT INFORMATION
  Report Type: Spontaneous
  Country: US (occurrence: US)
  Receive Date: 20180418
  Receipt Date: 20180418
  Transmission Date: 20180711
  Serious: Yes (Life-Threatening, Other)
  Sender: FDA-Public Use
  Company Number: None

PATIENT
  Age: 35 Year
  Sex: Male
  Weight: 63.9 kg

DRUGS (1)
  1. ZUBSOLV [Suspect]
     Active Substance: BUPRENORPHINE HYDROCHLORIDE\NALOXONE HYDROCHLORIDE
     Indication: DRUG DEPENDENCE
     Route: 060
     Dates: start: 20180212, end: 20180418

REACTIONS (5)
  - Nausea [None]
  - Dependence [None]
  - Product substitution issue [None]
  - Vomiting [None]
  - Drug dependence [None]

NARRATIVE: CASE EVENT DATE: 20180212
